FAERS Safety Report 16192733 (Version 2)
Quarter: 2019Q2

REPORT INFORMATION
  Report Type: Spontaneous
  Country: US (occurrence: US)
  Receive Date: 20190412
  Receipt Date: 20190627
  Transmission Date: 20190711
  Serious: Yes (Hospitalization, Other)
  Sender: FDA-Public Use
  Company Number: US-ASTRAZENECA-2019SE53069

PATIENT
  Age: 21484 Day
  Sex: Male

DRUGS (17)
  1. MELOXICAM. [Concomitant]
     Active Substance: MELOXICAM
  2. FUROSEMIDE. [Concomitant]
     Active Substance: FUROSEMIDE
  3. GABAPENTIN. [Concomitant]
     Active Substance: GABAPENTIN
  4. CLOPIDOGREL [Concomitant]
     Active Substance: CLOPIDOGREL BISULFATE
  5. METFORMIN [Concomitant]
     Active Substance: METFORMIN HYDROCHLORIDE
  6. COREG [Concomitant]
     Active Substance: CARVEDILOL
  7. GLUCAGON. [Concomitant]
     Active Substance: GLUCAGON
  8. ONGLYZA [Suspect]
     Active Substance: SAXAGLIPTIN HYDROCHLORIDE
     Indication: TYPE 2 DIABETES MELLITUS
     Route: 048
     Dates: start: 20160923, end: 20181119
  9. TIZANIDINE. [Concomitant]
     Active Substance: TIZANIDINE
  10. NOVOLIN [Concomitant]
     Active Substance: INSULIN HUMAN
  11. OXYCODONE [Concomitant]
     Active Substance: OXYCODONE
  12. GLIPIZIDE. [Concomitant]
     Active Substance: GLIPIZIDE
  13. VIAGRA [Concomitant]
     Active Substance: SILDENAFIL CITRATE
  14. ONGLYZA [Suspect]
     Active Substance: SAXAGLIPTIN HYDROCHLORIDE
     Indication: TYPE 2 DIABETES MELLITUS
     Route: 048
     Dates: start: 201608
  15. ALLOPURINOL. [Concomitant]
     Active Substance: ALLOPURINOL
  16. ASPIRIN. [Concomitant]
     Active Substance: ASPIRIN
  17. LISINOPRIL. [Concomitant]
     Active Substance: LISINOPRIL

REACTIONS (3)
  - Myocardial infarction [Unknown]
  - Cardiac failure [Unknown]
  - Cardiac failure congestive [Unknown]

NARRATIVE: CASE EVENT DATE: 20180120
